FAERS Safety Report 19013074 (Version 1)
Quarter: 2021Q1

REPORT INFORMATION
  Report Type: Spontaneous
  Country: AR (occurrence: AR)
  Receive Date: 20210315
  Receipt Date: 20210315
  Transmission Date: 20210420
  Serious: Yes (Other)
  Sender: FDA-Public Use
  Company Number: AR-PFIZER INC-2021239965

PATIENT
  Age: 56 Year
  Sex: Female

DRUGS (1)
  1. VYNDAQEL [Suspect]
     Active Substance: TAFAMIDIS MEGLUMINE
     Dosage: UNK

REACTIONS (4)
  - Blindness [Unknown]
  - Eye disorder [Unknown]
  - Rash [Unknown]
  - Hypersensitivity [Unknown]
